FAERS Safety Report 17346105 (Version 1)
Quarter: 2020Q1

REPORT INFORMATION
  Report Type: Spontaneous
  Country: US (occurrence: US)
  Receive Date: 20200114
  Receipt Date: 20200114
  Transmission Date: 20200409
  Serious: Yes (Hospitalization)
  Sender: FDA-Public Use
  Company Number: None

PATIENT
  Age: 17 Year
  Sex: Male

DRUGS (1)
  1. AMINOCAPROIC ACID 500MG VITRUVIAS THERAPEUTICS [Suspect]
     Active Substance: AMINOCAPROIC ACID
     Indication: VON WILLEBRAND^S DISEASE
     Route: 048
     Dates: start: 20191222

REACTIONS (2)
  - Syncope [None]
  - Fall [None]

NARRATIVE: CASE EVENT DATE: 20191223
